FAERS Safety Report 4421153-5 (Version None)
Quarter: 2004Q3

REPORT INFORMATION
  Report Type: 
  Country: None (occurrence: None)
  Receive Date: 20040804
  Receipt Date: 20040729
  Transmission Date: 20050211
  Serious: Yes (Life-Threatening, Hospitalization, Other)
  Sender: FDA-Public Use
  Company Number: HQWYE422426JUL04

PATIENT
  Age: 31 Year
  Sex: Male

DRUGS (15)
  1. CYCLOSPORINE [Suspect]
     Indication: PROPHYLAXIS AGAINST TRANSPLANT REJECTION
     Dates: end: 20040624
  2. MYCOPHENOLATE MOFETIL [Concomitant]
  3. PREDNISONE [Concomitant]
  4. FUROSEMIDE [Concomitant]
  5. ERYTHROPOIETIN     (ERYTHROPOIETIN) [Concomitant]
  6. ACETYLSALICYLIC ACID SRT [Concomitant]
  7. PIRACETAM             (PIRACETAM) [Concomitant]
  8. KALIUM CHLORATUM SPOFA      (POTASSIUM CHLORIDE) [Concomitant]
  9. CLONIDINE HCL [Concomitant]
  10. METOPROLOL         (METOPROLOL) [Concomitant]
  11. DIHYDRAZINE SULFATE    (DIHYDRALAZINE SULFATE) [Concomitant]
  12. PRAZOSIN HYDROCHLORIDE            (PRAZOSIN HYDROCHLORIDE) [Concomitant]
  13. DOXAZOSIN     (DOXAZOSIN) [Concomitant]
  14. FELODIPINE [Concomitant]
  15. RANITIDINE [Concomitant]

REACTIONS (15)
  - BLOOD CREATINE INCREASED [None]
  - BLOOD POTASSIUM INCREASED [None]
  - BLOOD UREA INCREASED [None]
  - DEHYDRATION [None]
  - DIZZINESS [None]
  - EPISTAXIS [None]
  - HAEMATOCRIT DECREASED [None]
  - HAEMODIALYSIS [None]
  - HAEMOGLOBIN DECREASED [None]
  - MALIGNANT HYPERTENSION [None]
  - OEDEMA PERIPHERAL [None]
  - RED BLOOD CELL COUNT DECREASED [None]
  - TACHYCARDIA [None]
  - VISUAL DISTURBANCE [None]
  - WHITE BLOOD CELL COUNT INCREASED [None]
